FAERS Safety Report 9519533 (Version 1)
Quarter: 2013Q3

REPORT INFORMATION
  Report Type: Spontaneous
  Country: US (occurrence: US)
  Receive Date: 20130912
  Receipt Date: 20130912
  Transmission Date: 20140515
  Serious: Yes (Death, Other)
  Sender: FDA-Public Use
  Company Number: US-TEVA-431682USA

PATIENT
  Age: 23 Month
  Sex: Male
  Weight: 12.5 kg

DRUGS (4)
  1. CARBAMAZEPINE [Suspect]
     Indication: CONVULSION
     Dosage: 100MG DAILY; INCREASED TO 500MG DAILY
     Route: 065
  2. CARBAMAZEPINE [Interacting]
     Indication: CONVULSION
     Dosage: 500MG DAILY FROM 29D BEFORE ADR ONSET
     Route: 065
  3. PHENYTOIN [Interacting]
     Indication: CONVULSION
     Dosage: 125MG DAILY; DECREASED TO 100MG DAILY
     Route: 065
  4. PHENYTOIN [Interacting]
     Indication: CONVULSION
     Dosage: 100MG DAILY
     Route: 065

REACTIONS (5)
  - Toxicity to various agents [Fatal]
  - Cardiac arrest [Unknown]
  - Unresponsive to stimuli [Not Recovered/Not Resolved]
  - Cyanosis [Unknown]
  - Drug interaction [Not Recovered/Not Resolved]
